FAERS Safety Report 6895118-8 (Version None)
Quarter: 2010Q3

REPORT INFORMATION
  Report Type: 
  Country: None (occurrence: None)
  Receive Date: 20100802
  Receipt Date: 20100720
  Transmission Date: 20110219
  Serious: Yes (Hospitalization)
  Sender: FDA-Public Use
  Company Number: GB-WATSON-2010-10104

PATIENT
  Age: 79 Year
  Sex: Male

DRUGS (12)
  1. RAMIPRIL (WATSON LABORATORIES) [Suspect]
     Indication: HYPERTENSION
     Dosage: 7 1/2 MG, DAILY
     Route: 048
  2. RAMIPRIL (WATSON LABORATORIES) [Suspect]
     Indication: LEFT VENTRICULAR FAILURE
  3. METFORMIN HCL [Suspect]
     Indication: DIABETES MELLITUS
     Dosage: 500 MG, TID
     Route: 048
  4. ATORVASTATIN [Suspect]
     Indication: HYPERCHOLESTEROLAEMIA
     Dosage: 20 MG, DAILY
     Route: 048
     Dates: end: 20100712
  5. BENDROFLUMETHIAZIDE [Suspect]
     Indication: POLYURIA
     Dosage: 2 1/2 MG, DAILY
     Route: 048
  6. FUROSEMIDE [Suspect]
     Indication: FLUID OVERLOAD
     Dosage: 40 MG, DAILY
     Route: 048
  7. OXYCONTIN [Suspect]
     Indication: PHANTOM PAIN
     Dosage: 40 MG, BID
     Route: 048
  8. OXYCODONE HCL [Suspect]
     Indication: BREAKTHROUGH PAIN
     Dosage: 10 MG, QID
     Route: 048
     Dates: end: 20100712
  9. ASPIRIN [Concomitant]
     Indication: PRODUCT USED FOR UNKNOWN INDICATION
  10. DOXYCYCLINE [Concomitant]
     Indication: PRODUCT USED FOR UNKNOWN INDICATION
  11. PARACETAMOL [Concomitant]
     Indication: PRODUCT USED FOR UNKNOWN INDICATION
  12. PREGABALIN [Concomitant]
     Indication: PRODUCT USED FOR UNKNOWN INDICATION

REACTIONS (6)
  - BLOOD CREATINE PHOSPHOKINASE INCREASED [None]
  - CONFUSIONAL STATE [None]
  - MIOSIS [None]
  - NARCOTIC INTOXICATION [None]
  - RENAL FAILURE ACUTE [None]
  - SOMNOLENCE [None]
